FAERS Safety Report 8375523-3 (Version None)
Quarter: 2012Q1

REPORT INFORMATION
  Report Type: 
  Country: None (occurrence: None)
  Receive Date: 20120323
  Receipt Date: 20111123
  Transmission Date: 20120608
  Serious: Yes (Hospitalization)
  Sender: FDA-Public Use
  Company Number: 163-21880-11113593

PATIENT
  Age: 79 Year
  Sex: Female

DRUGS (12)
  1. VITAMIN D [Concomitant]
  2. MULTIVITAMIN [Concomitant]
  3. GABAPENTIN [Concomitant]
  4. ZANAFLEX [Concomitant]
  5. ASPIRIN [Concomitant]
  6. VITAMIN E [Concomitant]
  7. MOBIC [Concomitant]
  8. DICLOFENAC SODIUM [Concomitant]
  9. GLUCOSAMINE (GLUCOSAMINE) [Concomitant]
  10. CALCIUM CARBONATE [Concomitant]
  11. REVLIMID [Suspect]
     Indication: MULTIPLE MYELOMA
     Dosage: 25 MG, QD X 21 DAYS, PO
     Route: 048
     Dates: start: 20081101
  12. ZOMIG [Concomitant]

REACTIONS (1)
  - INFECTION [None]
